FAERS Safety Report 13600868 (Version 1)
Quarter: 2017Q2

REPORT INFORMATION
  Report Type: Spontaneous
  Country: US (occurrence: US)
  Receive Date: 20170531
  Receipt Date: 20170531
  Transmission Date: 20170830
  Serious: Yes (Hospitalization)
  Sender: FDA-Public Use
  Company Number: None

PATIENT
  Age: 67 Year
  Sex: Female

DRUGS (1)
  1. POMALYST [Suspect]
     Active Substance: POMALIDOMIDE
     Indication: PLASMA CELL MYELOMA
     Route: 048
     Dates: start: 20170203

REACTIONS (4)
  - Pneumonia [None]
  - Sepsis [None]
  - Febrile neutropenia [None]
  - Plasma cell myeloma [None]

NARRATIVE: CASE EVENT DATE: 20170515
